FAERS Safety Report 20235757 (Version 1)
Quarter: 2021Q4

REPORT INFORMATION
  Report Type: Spontaneous
  Country: US (occurrence: US)
  Receive Date: 20211228
  Receipt Date: 20211228
  Transmission Date: 20220303
  Serious: No
  Sender: FDA-Public Use
  Company Number: US-ALK-ABELLO A/S-2021AA004763

PATIENT

DRUGS (4)
  1. ALTERNARIA ALTERNATA [Suspect]
     Active Substance: ALTERNARIA ALTERNATA
     Indication: Product used for unknown indication
     Dosage: UNK
     Route: 060
     Dates: start: 20211101
  2. AMBROSIA ARTEMISIIFOLIA POLLEN\AMBROSIA TRIFIDA POLLEN [Suspect]
     Active Substance: AMBROSIA ARTEMISIIFOLIA POLLEN\AMBROSIA TRIFIDA POLLEN
     Indication: Product used for unknown indication
     Dosage: UNK
     Route: 060
     Dates: start: 20211101
  3. PHLEUM PRATENSE POLLEN [Suspect]
     Active Substance: PHLEUM PRATENSE POLLEN
     Dosage: UNK
     Route: 060
     Dates: start: 20211101
  4. GLYCERIN [Suspect]
     Active Substance: GLYCERIN
     Indication: Product used for unknown indication
     Dosage: UNK
     Route: 060
     Dates: start: 20211101

REACTIONS (7)
  - Mouth swelling [Recovered/Resolved]
  - Glossodynia [Recovering/Resolving]
  - Gingival swelling [Recovering/Resolving]
  - Gingival discomfort [Recovering/Resolving]
  - Gingival recession [Recovering/Resolving]
  - Incorrect route of product administration [Recovered/Resolved]
  - Off label use [Recovered/Resolved]

NARRATIVE: CASE EVENT DATE: 20211101
